FAERS Safety Report 10718211 (Version 2)
Quarter: 2015Q1

REPORT INFORMATION
  Report Type: Spontaneous
  Country: US (occurrence: US)
  Receive Date: 20150118
  Receipt Date: 20150120
  Transmission Date: 20150721
  Serious: Yes (Other)
  Sender: FDA-Public Use
  Company Number: US-RB-072199-15

PATIENT
  Age: 74 Year
  Sex: Female

DRUGS (1)
  1. MUCINEX [Suspect]
     Active Substance: GUAIFENESIN
     Indication: PRODUCT USED FOR UNKNOWN INDICATION
     Dosage: 1 TIME THIS AM (09-JAN-2015) ONLY; LAST USED THE PRODUCT ON 09-JAN-2015
     Route: 065
     Dates: start: 20150109

REACTIONS (6)
  - Drug ineffective [Not Recovered/Not Resolved]
  - Haemoptysis [Unknown]
  - Bronchospasm [Not Recovered/Not Resolved]
  - Respiratory tract congestion [Not Recovered/Not Resolved]
  - Cough [Not Recovered/Not Resolved]
  - Dyspnoea [Recovered/Resolved]

NARRATIVE: CASE EVENT DATE: 20150109
